FAERS Safety Report 23970974 (Version 2)
Quarter: 2024Q2

REPORT INFORMATION
  Report Type: Report from Study
  Country: US (occurrence: US)
  Receive Date: 20240613
  Receipt Date: 20240614
  Transmission Date: 20240717
  Serious: No
  Sender: FDA-Public Use
  Company Number: US-002147023-NVSC2024US123881

PATIENT
  Sex: Male

DRUGS (1)
  1. LEQVIO [Suspect]
     Active Substance: INCLISIRAN SODIUM
     Indication: Hyperlipidaemia
     Dosage: UNK
     Route: 065
     Dates: start: 20240605

REACTIONS (2)
  - Paraesthesia [Unknown]
  - Dizziness [Unknown]
